FAERS Safety Report 9909676 (Version 1)
Quarter: 2014Q1

REPORT INFORMATION
  Report Type: Spontaneous
  Country: US (occurrence: US)
  Receive Date: 20140219
  Receipt Date: 20140219
  Transmission Date: 20141002
  Serious: No
  Sender: FDA-Public Use
  Company Number: US-BAYER-2014-024376

PATIENT
  Age: 14 Year
  Sex: Male

DRUGS (3)
  1. FINACEA [Suspect]
     Indication: ECZEMA
     Dosage: UNK UNK, BID
     Route: 062
     Dates: start: 20140212, end: 20140214
  2. FINACEA [Suspect]
     Indication: ERYTHEMA
  3. FINACEA [Suspect]
     Indication: DRY SKIN

REACTIONS (2)
  - Application site erythema [Not Recovered/Not Resolved]
  - Off label use [None]
